FAERS Safety Report 9768925 (Version 1)
Quarter: 2013Q4

REPORT INFORMATION
  Report Type: Spontaneous
  Country: FR (occurrence: None)
  Receive Date: 20131216
  Receipt Date: 20131216
  Transmission Date: 20140711
  Serious: Yes (Hospitalization)
  Sender: FDA-Public Use
  Company Number: 2013000319

PATIENT
  Age: 65 Year
  Sex: Female

DRUGS (17)
  1. ACEON [Suspect]
     Indication: PRODUCT USED FOR UNKNOWN INDICATION
     Route: 048
     Dates: end: 20130611
  2. DIAMICRON [Suspect]
     Indication: PRODUCT USED FOR UNKNOWN INDICATION
     Route: 048
     Dates: end: 20130611
  3. MABTHERA [Suspect]
     Indication: POLYMYOSITIS
     Dosage: 4 COURSES OF 375 MG/M2, INTRAVENOUS
     Route: 042
     Dates: start: 20130423, end: 20130517
  4. FUROSEMIDE [Suspect]
     Indication: PRODUCT USED FOR UNKNOWN INDICATION
     Route: 048
     Dates: end: 20130611
  5. METFORMIN HYDROCHLORIDE [Suspect]
     Indication: PRODUCT USED FOR UNKNOWN INDICATION
     Route: 048
     Dates: end: 20130611
  6. SITAGLIPTIN PHOSPHATE [Suspect]
     Indication: PRODUCT USED FOR UNKNOWN INDICATION
     Route: 048
  7. LANSOPRAZOLE [Concomitant]
  8. LEMOXIL (BROMAZEPAM) [Concomitant]
  9. KARDEGIC (ACETYLSALICYLATE LYSINE) [Concomitant]
  10. ACEBUTOLOL [Concomitant]
  11. CRESTOR (ROSUVASTATIN CALCIUM) [Concomitant]
  12. PROCORALAN (IVABRADINE HYDROCHLORIDE) [Concomitant]
  13. LEVOTHYROX (LEVOTHYROXINE SODIUM) [Concomitant]
  14. PREDNISONE [Concomitant]
  15. FOSAVANCE (ALENDRONATE SODIUM, COLECALCIFEROL) [Concomitant]
  16. OROCAL (CALCIUM CARBONATE) [Concomitant]
  17. SINEMET (CARBIDOPA, LEVODOPA) [Concomitant]

REACTIONS (2)
  - Diarrhoea [None]
  - Renal failure acute [None]
